FAERS Safety Report 7617061-9 (Version None)
Quarter: 2011Q3

REPORT INFORMATION
  Report Type: 
  Country: None (occurrence: None)
  Receive Date: 20110718
  Receipt Date: 20110713
  Transmission Date: 20111222
  Serious: Yes (Death, Hospitalization, Other)
  Sender: FDA-Public Use
  Company Number: US-TEVA-274004USA

PATIENT
  Sex: Male
  Weight: 85.806 kg

DRUGS (17)
  1. AMLODIPINE [Concomitant]
     Indication: PRODUCT USED FOR UNKNOWN INDICATION
     Dosage: 10 MILLIGRAM;
     Dates: start: 19950101
  2. METOPROLOL TARTRATE [Concomitant]
     Indication: PRODUCT USED FOR UNKNOWN INDICATION
     Dosage: 50 MILLIGRAM; EVERY MORNING
     Dates: start: 19950101
  3. ROSUVASTATIN [Concomitant]
     Dosage: 50 MILLIGRAM;
     Route: 048
  4. ACETYLSALICYLIC ACID SRT [Concomitant]
     Indication: PRODUCT USED FOR UNKNOWN INDICATION
     Dosage: 81 MILLIGRAM;
  5. BISACODYL [Concomitant]
     Route: 054
  6. CHLORPROMAZINE [Concomitant]
     Indication: HICCUPS
     Dosage: 100 MILLIGRAM;
  7. B-KOMPLEX [Concomitant]
     Indication: PRODUCT USED FOR UNKNOWN INDICATION
     Dosage: 100 MILLIGRAM;
  8. CISPLATIN [Suspect]
     Indication: HEAD AND NECK CANCER
     Route: 042
     Dates: start: 20110317, end: 20110317
  9. OMEPRAZOLE [Concomitant]
     Indication: PRODUCT USED FOR UNKNOWN INDICATION
     Dosage: 10 MILLIGRAM; ONCE EVERY MORNING
     Dates: start: 20030101
  10. PRAVASTATIN [Concomitant]
     Indication: PRODUCT USED FOR UNKNOWN INDICATION
     Dosage: 20 MILLIGRAM; HS
     Dates: start: 19950101
  11. CALCIUM ACETATE [Concomitant]
     Dosage: 2 TABLET;
     Route: 048
  12. DIOVAN HCT [Concomitant]
     Indication: PRODUCT USED FOR UNKNOWN INDICATION
     Dosage: 320/25 DAILY IN THE MORNING
     Dates: start: 19950101
  13. ALBUTEROL [Concomitant]
  14. FLUOROURACIL [Suspect]
     Indication: HEAD AND NECK CANCER
     Dosage: 2000 MG FOR 4 DAYS
     Route: 042
     Dates: start: 20110317, end: 20110321
  15. INVESTIGATIONAL DRUG- BLINDED THERAPY [Suspect]
     Indication: HEAD AND NECK CANCER
     Route: 042
     Dates: start: 20110317, end: 20110317
  16. ACETAMINOPHEN [Concomitant]
  17. MAGNESIUM HYDROXIDE [Concomitant]

REACTIONS (4)
  - RENAL FAILURE ACUTE [None]
  - SEPSIS [None]
  - CARDIAC ARREST [None]
  - TUMOUR LYSIS SYNDROME [None]
